FAERS Safety Report 9412117 (Version 1)
Quarter: 2013Q3

REPORT INFORMATION
  Report Type: Spontaneous
  Country: US (occurrence: US)
  Receive Date: 20130722
  Receipt Date: 20130722
  Transmission Date: 20140515
  Serious: No
  Sender: FDA-Public Use
  Company Number: US-B.I. PHARMACEUTICALS,INC./RIDGEFIELD-2013-BI-21016BP

PATIENT
  Sex: Female
  Weight: 45 kg

DRUGS (7)
  1. SPIRIVA [Suspect]
     Indication: CHRONIC OBSTRUCTIVE PULMONARY DISEASE
     Dosage: 18 MCG
     Route: 055
     Dates: start: 2004
  2. ADVAIR [Concomitant]
     Indication: CHRONIC OBSTRUCTIVE PULMONARY DISEASE
     Dosage: FORMULATION: INHALATION AEROSOL
     Route: 055
  3. REMERON [Concomitant]
     Indication: SLEEP DISORDER
     Dosage: 45 MG
     Route: 048
  4. TRAZADONE [Concomitant]
     Indication: SLEEP DISORDER
     Dosage: 250 MG
     Route: 048
  5. VALIUM [Concomitant]
     Indication: INTERVERTEBRAL DISC DEGENERATION
     Route: 048
  6. PERCOCET [Concomitant]
     Indication: INTERVERTEBRAL DISC DEGENERATION
     Route: 048
  7. FIORICET [Concomitant]
     Indication: MIGRAINE
     Route: 048

REACTIONS (3)
  - Multiple sclerosis [Not Recovered/Not Resolved]
  - Nightmare [Not Recovered/Not Resolved]
  - Fatigue [Not Recovered/Not Resolved]
